FAERS Safety Report 5689271-1 (Version None)
Quarter: 2008Q1

REPORT INFORMATION
  Report Type: 
  Country: None (occurrence: None)
  Receive Date: 20080331
  Receipt Date: 20080318
  Transmission Date: 20080703
  Serious: Yes (Hospitalization, Other)
  Sender: FDA-Public Use
  Company Number: US-ELI_LILLY_AND_COMPANY-US200802000796

PATIENT
  Sex: Female

DRUGS (12)
  1. FORTEO [Suspect]
     Indication: OSTEOPOROSIS
     Dosage: 20 UG, UNK
     Route: 058
     Dates: start: 20060901
  2. DILANTIN [Concomitant]
     Indication: CONVULSION
     Dosage: 400 MG, DAILY (1/D)
     Dates: start: 19940101
  3. CALCIUM [Concomitant]
     Indication: OSTEOPOROSIS
     Dosage: 1500 MG, DAILY (1/D)
  4. VITAMIN D [Concomitant]
     Indication: OSTEOPOROSIS
     Dosage: 1200 IU, DAILY (1/D)
  5. NEURONTIN [Concomitant]
  6. EFFEXOR [Concomitant]
  7. LIPITOR [Concomitant]
  8. LORAZEPAM [Concomitant]
  9. MECLIZINE [Concomitant]
  10. LUNESTA [Concomitant]
  11. DILAUDID [Concomitant]
     Route: 048
  12. MORPHINE [Concomitant]

REACTIONS (5)
  - FALL [None]
  - FEMUR FRACTURE [None]
  - PAIN IN EXTREMITY [None]
  - RADIUS FRACTURE [None]
  - WRIST FRACTURE [None]
